FAERS Safety Report 9303115 (Version 1)
Quarter: 2013Q2

REPORT INFORMATION
  Report Type: Spontaneous
  Country: US (occurrence: None)
  Receive Date: 20130516
  Receipt Date: 20130516
  Transmission Date: 20140414
  Serious: Yes (Hospitalization, Other)
  Sender: FDA-Public Use
  Company Number: SYM-2013-03757

PATIENT
  Age: 82 Year
  Sex: Male

DRUGS (1)
  1. XENAZINE [Suspect]
     Indication: DYSKINESIA
     Route: 048
     Dates: start: 20120307

REACTIONS (3)
  - Bronchitis [None]
  - Pneumonia [None]
  - Cardiac failure congestive [None]
